FAERS Safety Report 15363438 (Version 5)
Quarter: 2019Q4

REPORT INFORMATION
  Report Type: Report from Study
  Country: US (occurrence: US)
  Receive Date: 20180907
  Receipt Date: 20191209
  Transmission Date: 20200122
  Serious: Yes (Hospitalization)
  Sender: FDA-Public Use
  Company Number: US-ACTELION-A-US2016-137159

PATIENT
  Age: 88 Year
  Sex: Female
  Weight: 46.71 kg

DRUGS (5)
  1. AMLODIPINE [Concomitant]
     Active Substance: AMLODIPINE BESYLATE
  2. OPSUMIT [Suspect]
     Active Substance: MACITENTAN
     Dosage: 10 MG QD
     Route: 048
  3. ADEMPAS [Suspect]
     Active Substance: RIOCIGUAT
     Indication: PRODUCT USED FOR UNKNOWN INDICATION
     Dosage: 1.5 MG, UNK
     Route: 065
  4. NIFEDIPINE. [Concomitant]
     Active Substance: NIFEDIPINE
  5. OPSUMIT [Suspect]
     Active Substance: MACITENTAN
     Indication: PULMONARY HYPERTENSION
     Dosage: 10 MG, QD
     Route: 048
     Dates: start: 20160510

REACTIONS (27)
  - Diarrhoea [Unknown]
  - Vision blurred [Unknown]
  - Asthenia [Unknown]
  - Oedema peripheral [Unknown]
  - Hospitalisation [Unknown]
  - Balance disorder [Unknown]
  - Oedema [Unknown]
  - Gait disturbance [Unknown]
  - Acne [Unknown]
  - Hypotension [Unknown]
  - Fatigue [Unknown]
  - Blister [Unknown]
  - Abdominal discomfort [Unknown]
  - Feeling abnormal [Unknown]
  - Pain in extremity [Unknown]
  - Dyspnoea [Unknown]
  - Decreased appetite [Unknown]
  - Epistaxis [Unknown]
  - Peripheral swelling [Unknown]
  - Product dose omission [Unknown]
  - Gastrointestinal disorder [Unknown]
  - Dizziness [Unknown]
  - Arthralgia [Unknown]
  - Pneumonia [Unknown]
  - Dyspepsia [Unknown]
  - Headache [Unknown]
  - Anaemia [Unknown]

NARRATIVE: CASE EVENT DATE: 201706
